FAERS Safety Report 15125872 (Version 2)
Quarter: 2018Q3

REPORT INFORMATION
  Report Type: Spontaneous
  Country: GB (occurrence: GB)
  Receive Date: 20180710
  Receipt Date: 20180814
  Transmission Date: 20181010
  Serious: Yes (Death)
  Sender: FDA-Public Use
  Company Number: GB-009507513-1807GBR002814

PATIENT
  Age: 62 Year
  Sex: Male
  Weight: 94 kg

DRUGS (1)
  1. KEYTRUDA [Suspect]
     Active Substance: PEMBROLIZUMAB
     Dosage: UNK UNK, CYCLICAL
     Route: 042
     Dates: start: 201710, end: 201805

REACTIONS (2)
  - Pneumonitis [Fatal]
  - Skin reaction [Unknown]

NARRATIVE: CASE EVENT DATE: 201806
